FAERS Safety Report 4666488-6 (Version None)
Quarter: 2005Q2

REPORT INFORMATION
  Report Type: 
  Country: None (occurrence: None)
  Receive Date: 20050518
  Receipt Date: 20050512
  Transmission Date: 20051028
  Serious: Yes (Other)
  Sender: FDA-Public Use
  Company Number: SUSI-2005-00168

PATIENT
  Age: 7 Year
  Sex: Male

DRUGS (2)
  1. ADDERALL 10 [Suspect]
     Dosage: 15 MG, 1X/DAY:QD, ORAL
     Route: 048
     Dates: start: 20050215, end: 20050301
  2. ADDERALL 10 [Suspect]
     Dosage: 10 MG, 1X/DAY:QD, ORAL
     Route: 048
     Dates: start: 20041201, end: 20050215

REACTIONS (7)
  - ANGINA PECTORIS [None]
  - CARDIAC DISCOMFORT [None]
  - CARDIAC DISORDER [None]
  - CARDIOVASCULAR DISORDER [None]
  - DRUG HYPERSENSITIVITY [None]
  - ELECTROCARDIOGRAM ABNORMAL [None]
  - SNEEZING [None]
